FAERS Safety Report 15975802 (Version 2)
Quarter: 2019Q2

REPORT INFORMATION
  Report Type: Spontaneous
  Country: US (occurrence: US)
  Receive Date: 20190218
  Receipt Date: 20190620
  Transmission Date: 20190711
  Serious: Yes (Hospitalization)
  Sender: FDA-Public Use
  Company Number: US-HQ SPECIALTY-US-2019INT000032

PATIENT

DRUGS (5)
  1. CISPLATIN. [Suspect]
     Active Substance: CISPLATIN
     Dosage: UNK
     Route: 065
  2. DOXORUBICIN [Suspect]
     Active Substance: DOXORUBICIN
     Indication: LEIOMYOSARCOMA
     Dosage: 65 MG/M2, (ON DAY 1)
     Route: 065
  3. DACARBAZINE. [Suspect]
     Active Substance: DACARBAZINE
     Indication: LEIOMYOSARCOMA
     Dosage: 300 MG/M2, (ON DAY 1, 2 AND 3)
     Route: 065
  4. CISPLATIN. [Suspect]
     Active Substance: CISPLATIN
     Indication: LEIOMYOSARCOMA
     Dosage: 50 MG/M2, (ON DAY 1), THREE COURSES.
     Route: 065
  5. IFOSFAMIDE. [Suspect]
     Active Substance: IFOSFAMIDE
     Indication: LEIOMYOSARCOMA
     Dosage: 2.5 GRAMS/M2, (FOR 3 DAYS)
     Route: 065

REACTIONS (1)
  - Febrile neutropenia [Unknown]
